FAERS Safety Report 5196273-0 (Version None)
Quarter: 2006Q4

REPORT INFORMATION
  Report Type: 
  Country: None (occurrence: None)
  Receive Date: 20061222
  Receipt Date: 20061208
  Transmission Date: 20070319
  Serious: Yes (Other)
  Sender: FDA-Public Use
  Company Number: 2006152552

PATIENT
  Age: 18 Year
  Sex: Male

DRUGS (3)
  1. DILANTIN [Suspect]
     Dosage: 300 MG (100 MG, 3 IN 1 D)
  2. ACETAMINOPHEN [Concomitant]
  3. FEXOFENADINE HCL [Concomitant]

REACTIONS (10)
  - AGITATION [None]
  - BALANCE DISORDER [None]
  - CONVULSION [None]
  - DIZZINESS [None]
  - HEADACHE [None]
  - HYPERAESTHESIA [None]
  - PARAESTHESIA [None]
  - PHOTOSENSITIVITY REACTION [None]
  - PRURITUS [None]
  - RASH MORBILLIFORM [None]
